FAERS Safety Report 5591659-4 (Version None)
Quarter: 2008Q1

REPORT INFORMATION
  Report Type: 
  Country: None (occurrence: None)
  Receive Date: 20080115
  Receipt Date: 20080102
  Transmission Date: 20080703
  Serious: Yes (Life-Threatening, Hospitalization, Other)
  Sender: FDA-Public Use
  Company Number: US-ELI_LILLY_AND_COMPANY-US200709000746

PATIENT
  Sex: Male
  Weight: 115.65 kg

DRUGS (10)
  1. CIALIS [Suspect]
     Indication: ERECTILE DYSFUNCTION
     Dosage: 20 MG, UNK
     Dates: start: 20050413, end: 20070801
  2. WELLBUTRIN [Concomitant]
     Dosage: 300 MG, DAILY (1/D)
     Dates: start: 20051201
  3. FLUOXETINE HYDROCHLORIDE [Concomitant]
     Dosage: 20 MG, 3/D
     Dates: start: 20060901
  4. ALBUTEROL W/IPRATROPIUM [Concomitant]
     Indication: WHEEZING
     Dosage: UNK, AS NEEDED
     Dates: start: 20061201
  5. COUMADIN [Concomitant]
     Dosage: 5 MG, UNK
  6. COUMADIN [Concomitant]
     Dosage: 8 MG, UNK
  7. COUMADIN [Concomitant]
     Dosage: 10 MG, UNK
  8. DICLOFENAC [Concomitant]
     Dosage: 75 MG, 2/D
     Dates: start: 20070501
  9. SINGULAIR [Concomitant]
     Dosage: UNK, UNK
     Dates: end: 20070501
  10. RAMELTEON [Concomitant]
     Dosage: UNK, UNK
     Dates: start: 20060901

REACTIONS (16)
  - AGITATION [None]
  - ARTHRALGIA [None]
  - ASTHENIA [None]
  - CYST [None]
  - JOINT INJURY [None]
  - MOOD ALTERED [None]
  - MUSCLE SPASTICITY [None]
  - OEDEMA PERIPHERAL [None]
  - OPTIC NEURITIS [None]
  - PROSTATE EXAMINATION ABNORMAL [None]
  - PULMONARY EMBOLISM [None]
  - PULMONARY THROMBOSIS [None]
  - PUPILLARY REFLEX IMPAIRED [None]
  - RESTLESSNESS [None]
  - SKIN LACERATION [None]
  - THROMBOSIS [None]
